FAERS Safety Report 8910667 (Version 1)
Quarter: 2012Q4

REPORT INFORMATION
  Report Type: Spontaneous
  Country: GB (occurrence: None)
  Receive Date: 20121108
  Receipt Date: 20121108
  Transmission Date: 20130627
  Serious: Yes (Life-Threatening)
  Sender: FDA-Public Use
  Company Number: GER/UKI/12/0026520

PATIENT
  Age: 76 Year
  Sex: Male

DRUGS (9)
  1. OMEPRAZOLE (OMEPRAZOLE) [Suspect]
     Indication: DRUG USE FOR UNKNOWN INDICATION
     Route: 048
  2. CINNARIZINE [Concomitant]
  3. FORCEVAL [Concomitant]
  4. MIRTAZAPINE [Concomitant]
  5. PARACETAMOL [Concomitant]
  6. PAROXETINE [Concomitant]
  7. SANDO-K (POTASSIUM CHLORIDE) [Concomitant]
  8. THIAMINE [Concomitant]
  9. WARFARIN [Concomitant]

REACTIONS (4)
  - Hypokalaemia [None]
  - Hypomagnesaemia [None]
  - Cardiac arrest [None]
  - Electrolyte imbalance [None]
